FAERS Safety Report 24809330 (Version 3)
Quarter: 2025Q1

REPORT INFORMATION
  Report Type: Report from Study
  Country: US (occurrence: US)
  Receive Date: 20250106
  Receipt Date: 20250203
  Transmission Date: 20250409
  Serious: Yes (Hospitalization)
  Sender: BAUSCH AND LOMB
  Company Number: US-BAUSCH-BL-2024-001986

PATIENT
  Age: 76 Year
  Sex: Female

DRUGS (1)
  1. XIFAXAN [Suspect]
     Active Substance: RIFAXIMIN
     Indication: Product used for unknown indication
     Dosage: DOSE: 90 DAYS
     Route: 048

REACTIONS (4)
  - Ammonia abnormal [Unknown]
  - Cerebral disorder [Unknown]
  - Therapy interrupted [Unknown]
  - Insurance issue [Unknown]
